FAERS Safety Report 18223227 (Version 1)
Quarter: 2020Q3

REPORT INFORMATION
  Report Type: Spontaneous
  Country: US (occurrence: US)
  Receive Date: 20200902
  Receipt Date: 20200902
  Transmission Date: 20201103
  Serious: No
  Sender: FDA-Public Use
  Company Number: US-ALVOGEN-2019-ALVOGEN-101950

PATIENT
  Age: 55 Year
  Sex: Female
  Weight: 66.67 kg

DRUGS (2)
  1. CLINDAMYCIN. [Suspect]
     Active Substance: CLINDAMYCIN
     Indication: KNEE ARTHROPLASTY
     Dosage: 300 MG, UNK (1 HOUR PRIOR TO PROCEDURE); UNKNOWN.???POST KNEE REPLACEMENT, PRE DENTAL APT
     Dates: start: 20191101
  2. CLINDAMYCIN. [Suspect]
     Active Substance: CLINDAMYCIN
     Indication: ORTHODONTIC PROCEDURE
     Dosage: 300 MG, UNK (1 HOUR PRIOR TO PROCEDURE); UNKNOWN.???POST KNEE REPLACEMENT, PRE DENTAL APT
     Dates: start: 20191101

REACTIONS (2)
  - Urticaria [Recovered/Resolved]
  - Swelling face [Recovered/Resolved]
